FAERS Safety Report 17158905 (Version 1)
Quarter: 2019Q4

REPORT INFORMATION
  Report Type: Spontaneous
  Country: PH (occurrence: PH)
  Receive Date: 20191216
  Receipt Date: 20191216
  Transmission Date: 20200122
  Serious: Yes (Other)
  Sender: FDA-Public Use
  Company Number: PH-PFIZER INC-2019536031

PATIENT
  Sex: Female

DRUGS (3)
  1. LYRICA [Suspect]
     Active Substance: PREGABALIN
     Dosage: 500 MG, DAILY
  2. LYRICA [Suspect]
     Active Substance: PREGABALIN
     Dosage: 300 MG, DAILY
  3. LYRICA [Suspect]
     Active Substance: PREGABALIN
     Dosage: 50 MG, DAILY

REACTIONS (8)
  - Deafness [Unknown]
  - Speech disorder [Unknown]
  - Wound [Unknown]
  - Dysstasia [Unknown]
  - Weight increased [Unknown]
  - Toothache [Unknown]
  - Dysuria [Unknown]
  - Drug ineffective [Unknown]
